FAERS Safety Report 6124338-5 (Version None)
Quarter: 2009Q1

REPORT INFORMATION
  Report Type: 
  Country: None (occurrence: None)
  Receive Date: 20090319
  Receipt Date: 20090310
  Transmission Date: 20090719
  Serious: Yes (Death, Hospitalization)
  Sender: FDA-Public Use
  Company Number: ES-AVENTIS-200911198EU

PATIENT
  Age: 57 Year
  Sex: Female

DRUGS (6)
  1. SEGURIL                            /00032601/ [Suspect]
     Route: 048
     Dates: start: 20070701, end: 20070829
  2. DEXAMETASON [Suspect]
     Indication: METASTASIS
     Route: 048
     Dates: start: 20070712, end: 20070813
  3. SEPTRIN [Suspect]
     Indication: INFECTION PROPHYLAXIS
     Dosage: DOSE: 3 DF
     Route: 048
     Dates: start: 20070712, end: 20070813
  4. TEMODAL [Suspect]
     Indication: METASTASIS
     Route: 048
     Dates: start: 20070712, end: 20070716
  5. PRIMPERAN                          /00041901/ [Concomitant]
     Indication: VOMITING
     Dosage: DOSE: UNK
     Route: 048
     Dates: start: 20070701
  6. ZOFRAN [Concomitant]
     Indication: PROPHYLAXIS
     Route: 048
     Dates: start: 20070712, end: 20070712

REACTIONS (1)
  - PANCYTOPENIA [None]
